FAERS Safety Report 24095100 (Version 1)
Quarter: 2024Q3

REPORT INFORMATION
  Report Type: Spontaneous
  Country: US (occurrence: None)
  Receive Date: 20240716
  Receipt Date: 20240716
  Transmission Date: 20241016
  Serious: Yes (Other)
  Sender: ASTRAZENECA
  Company Number: 2024A157514

PATIENT
  Age: 39 Year
  Sex: Male

DRUGS (2)
  1. FARXIGA [Suspect]
     Active Substance: DAPAGLIFLOZIN PROPANEDIOL
     Route: 048
  2. METOPROLOL [Suspect]
     Active Substance: METOPROLOL

REACTIONS (3)
  - Cardiomyopathy [Unknown]
  - Cardiac failure [Unknown]
  - Blood creatinine decreased [Unknown]
